FAERS Safety Report 15727628 (Version 1)
Quarter: 2018Q4

REPORT INFORMATION
  Report Type: Spontaneous
  Country: US (occurrence: US)
  Receive Date: 20181217
  Receipt Date: 20181217
  Transmission Date: 20190205
  Serious: No
  Sender: FDA-Public Use
  Company Number: US-NOVEN PHARMACEUTICALS, INC.-US2017001304

PATIENT

DRUGS (9)
  1. MINIVELLE [Suspect]
     Active Substance: ESTRADIOL
     Dosage: 0.05 MG, UNK
     Route: 062
  2. MINIVELLE [Suspect]
     Active Substance: ESTRADIOL
     Dosage: 0.05 MG, UNK
     Route: 062
  3. MINIVELLE [Suspect]
     Active Substance: ESTRADIOL
     Indication: MENOPAUSAL SYMPTOMS
     Dosage: .0375 MG, UNK
     Route: 062
  4. MINIVELLE [Suspect]
     Active Substance: ESTRADIOL
     Dosage: 0.0375 MG, UNK
     Route: 062
  5. PROGESTERONE. [Concomitant]
     Active Substance: PROGESTERONE
  6. MINIVELLE [Suspect]
     Active Substance: ESTRADIOL
     Dosage: 0.0375 MG, UNK
     Route: 062
  7. PREDNISONE. [Concomitant]
     Active Substance: PREDNISONE
  8. VALTREX [Concomitant]
     Active Substance: VALACYCLOVIR HYDROCHLORIDE
     Indication: PRURITUS
  9. FLORASTOR [Concomitant]
     Active Substance: SACCHAROMYCES CEREVISIAE

REACTIONS (8)
  - Nausea [Unknown]
  - Drug intolerance [Unknown]
  - Hormone level abnormal [Unknown]
  - Product adhesion issue [Recovered/Resolved]
  - Oedema peripheral [Not Recovered/Not Resolved]
  - Blood oestrogen abnormal [Unknown]
  - Weight increased [Not Recovered/Not Resolved]
  - Off label use [Not Recovered/Not Resolved]
